FAERS Safety Report 11885144 (Version 1)
Quarter: 2016Q1

REPORT INFORMATION
  Report Type: Spontaneous
  Country: US (occurrence: US)
  Receive Date: 20160104
  Receipt Date: 20160104
  Transmission Date: 20160526
  Serious: Yes (Hospitalization)
  Sender: FDA-Public Use
  Company Number: US-BEH-2015057284

PATIENT
  Age: 15 Year
  Sex: Female
  Weight: 53 kg

DRUGS (18)
  1. VITAMIN D [Concomitant]
     Active Substance: CHOLECALCIFEROL
  2. SINGULAIR [Concomitant]
     Active Substance: MONTELUKAST SODIUM
  3. MULTIVITAMINS [Concomitant]
     Active Substance: VITAMINS
  4. N-ACETYL-L-CYSTEINE [Concomitant]
  5. HIZENTRA [Suspect]
     Active Substance: HUMAN IMMUNOGLOBULIN G
     Indication: PRODUCT USED FOR UNKNOWN INDICATION
     Dosage: 4 GM 20 ML VIAL
     Route: 058
  6. FOLIC ACID. [Concomitant]
     Active Substance: FOLIC ACID
  7. EPIPEN [Concomitant]
     Active Substance: EPINEPHRINE
  8. METHOTREXATE [Concomitant]
     Active Substance: METHOTREXATE
  9. DIPHENHYDRAMINE. [Concomitant]
     Active Substance: DIPHENHYDRAMINE
  10. METOCLOPRAMIDE. [Concomitant]
     Active Substance: METOCLOPRAMIDE
  11. PREVACID [Concomitant]
     Active Substance: LANSOPRAZOLE
  12. AMLODIPINE [Concomitant]
     Active Substance: AMLODIPINE BESYLATE
  13. ZYRTEC [Concomitant]
     Active Substance: CETIRIZINE HYDROCHLORIDE
  14. MIRALAX [Concomitant]
     Active Substance: POLYETHYLENE GLYCOL 3350
  15. CARAFATE [Concomitant]
     Active Substance: SUCRALFATE
  16. ATORVASTATIN [Concomitant]
     Active Substance: ATORVASTATIN
  17. METOPROLOL SUCCINATE. [Concomitant]
     Active Substance: METOPROLOL SUCCINATE
  18. LEVONORGESTREL -ETH ESTRADIOL [Concomitant]

REACTIONS (1)
  - Pneumonia [Unknown]

NARRATIVE: CASE EVENT DATE: 20151208
